FAERS Safety Report 20298490 (Version 1)
Quarter: 2022Q1

REPORT INFORMATION
  Report Type: Other
  Country: US (occurrence: None)
  Receive Date: 20220105
  Receipt Date: 20220105
  Transmission Date: 20220423
  Serious: Yes (Death)
  Sender: FDA-Public Use
  Company Number: US-ROCHE-2993337

PATIENT
  Sex: Male

DRUGS (1)
  1. PULMOZYME [Suspect]
     Active Substance: DORNASE ALFA
     Indication: Bronchiectasis
     Dosage: INHALE 2.5ML (1 VIAL) VIA NEBULIZER ONCE DAILY
     Route: 045

REACTIONS (2)
  - Death [Fatal]
  - Off label use [Unknown]
